FAERS Safety Report 5816995-5 (Version None)
Quarter: 2008Q3

REPORT INFORMATION
  Report Type: 
  Country: None (occurrence: None)
  Receive Date: 20080722
  Receipt Date: 20080716
  Transmission Date: 20090109
  Serious: Yes (Death, Hospitalization)
  Sender: FDA-Public Use
  Company Number: DE-JNJFOC-20080605621

PATIENT
  Age: 74 Year
  Sex: Female

DRUGS (8)
  1. REMICADE [Suspect]
     Indication: RHEUMATOID ARTHRITIS
     Route: 042
  2. METHOTREXATE [Concomitant]
  3. APONAL [Concomitant]
  4. NEURONTIN [Concomitant]
  5. DURAGESIC-100 [Concomitant]
  6. MUSARIL [Concomitant]
  7. VALORON [Concomitant]
  8. NOVALGIN [Concomitant]

REACTIONS (7)
  - BACK PAIN [None]
  - CAROTID ARTERY STENOSIS [None]
  - CIRCULATORY COLLAPSE [None]
  - HIP SURGERY [None]
  - INTERVERTEBRAL DISC PROTRUSION [None]
  - OSTEOARTHRITIS [None]
  - SPINAL OSTEOARTHRITIS [None]
